FAERS Safety Report 10931919 (Version 2)
Quarter: 2015Q4

REPORT INFORMATION
  Report Type: Report from Study
  Country: US (occurrence: US)
  Receive Date: 20150319
  Receipt Date: 20151016
  Transmission Date: 20160304
  Serious: Yes (Death, Hospitalization)
  Sender: FDA-Public Use
  Company Number: US-ACTELION-A-NJ2015-114643

PATIENT
  Age: 57 Year
  Sex: Male

DRUGS (16)
  1. TOPROL XL [Concomitant]
     Active Substance: METOPROLOL SUCCINATE
  2. ALLOPURINOL. [Concomitant]
     Active Substance: ALLOPURINOL
  3. POTASSIUM [Concomitant]
     Active Substance: POTASSIUM
  4. METOLAZONE. [Concomitant]
     Active Substance: METOLAZONE
  5. LIPITOR [Concomitant]
     Active Substance: ATORVASTATIN CALCIUM
  6. CLARITIN [Concomitant]
     Active Substance: LORATADINE
  7. MACITENTAN [Suspect]
     Active Substance: MACITENTAN
     Indication: PULMONARY ARTERIAL HYPERTENSION
     Dosage: 10 MG, UNK
     Route: 048
     Dates: start: 20140327
  8. IRON [Concomitant]
     Active Substance: IRON
  9. SILDENAFIL. [Concomitant]
     Active Substance: SILDENAFIL
  10. BABY ASPIRIN [Concomitant]
     Active Substance: ASPIRIN
  11. FUROSEMIDE. [Concomitant]
     Active Substance: FUROSEMIDE
  12. PROTONIX [Concomitant]
     Active Substance: PANTOPRAZOLE SODIUM
  13. SPIRONOLACTONE. [Concomitant]
     Active Substance: SPIRONOLACTONE
  14. TYVASO [Concomitant]
     Active Substance: TREPROSTINIL
  15. LEVOTHYROXINE. [Concomitant]
     Active Substance: LEVOTHYROXINE
  16. DIGOXIN. [Concomitant]
     Active Substance: DIGOXIN

REACTIONS (10)
  - Throat irritation [Unknown]
  - Transient ischaemic attack [Unknown]
  - Mechanical ventilation [Not Recovered/Not Resolved]
  - Haemoglobin decreased [Unknown]
  - Faeces discoloured [Not Recovered/Not Resolved]
  - Dyspnoea [Unknown]
  - Disease progression [Fatal]
  - Pulmonary arterial hypertension [Fatal]
  - Gastrointestinal haemorrhage [Not Recovered/Not Resolved]
  - Haematochezia [Not Recovered/Not Resolved]

NARRATIVE: CASE EVENT DATE: 20150306
